FAERS Safety Report 6370812-6 (Version None)
Quarter: 2009Q3

REPORT INFORMATION
  Report Type: 
  Country: None (occurrence: None)
  Receive Date: 20090923
  Receipt Date: 20070501
  Transmission Date: 20100115
  Serious: Yes (Other)
  Sender: FDA-Public Use
  Company Number: US-ASTRAZENECA-2006UW24893

PATIENT
  Age: 50 Year
  Sex: Female
  Weight: 132.4 kg

DRUGS (16)
  1. SEROQUEL [Suspect]
     Indication: MAJOR DEPRESSION
     Dosage: 25, 100 MG
     Route: 048
     Dates: start: 19990429
  2. SEROQUEL [Suspect]
     Indication: SLEEP DISORDER
     Dosage: 25, 100 MG
     Route: 048
     Dates: start: 19990429
  3. SEROQUEL [Suspect]
     Indication: MOOD SWINGS
     Dosage: 25, 100 MG
     Route: 048
     Dates: start: 19990429
  4. SEROQUEL [Suspect]
     Route: 048
     Dates: start: 20030101, end: 20060701
  5. SEROQUEL [Suspect]
     Route: 048
     Dates: start: 20030101, end: 20060701
  6. SEROQUEL [Suspect]
     Route: 048
     Dates: start: 20030101, end: 20060701
  7. GEODON [Interacting]
  8. HYDROCHLOROTHIAZIDE [Concomitant]
     Route: 048
  9. DIOVAN [Concomitant]
     Route: 048
  10. WELLBUTRIN XL [Concomitant]
     Route: 048
  11. PNEUMOVAX 23 [Concomitant]
     Route: 058
     Dates: start: 20010821
  12. PRILOSEC OTC [Concomitant]
     Route: 048
     Dates: start: 20060224
  13. PROTONIX [Concomitant]
     Route: 048
     Dates: start: 20060224
  14. LOVENOX [Concomitant]
     Route: 048
     Dates: start: 20060712
  15. COUMADIN [Concomitant]
     Route: 048
     Dates: start: 20040322
  16. ESTRADIOL [Concomitant]
     Route: 048

REACTIONS (6)
  - ANXIETY [None]
  - DIABETES MELLITUS [None]
  - KETOACIDOSIS [None]
  - PANCREATITIS [None]
  - PANIC ATTACK [None]
  - SOCIAL PHOBIA [None]
